FAERS Safety Report 16421147 (Version 2)
Quarter: 2019Q3

REPORT INFORMATION
  Report Type: Report from Study
  Country: US (occurrence: US)
  Receive Date: 20190612
  Receipt Date: 20190801
  Transmission Date: 20191004
  Serious: Yes (Hospitalization)
  Sender: FDA-Public Use
  Company Number: US-ACTELION-A-NJ2019-189584

PATIENT
  Sex: Male
  Weight: 95.24 kg

DRUGS (2)
  1. OPSUMIT [Suspect]
     Active Substance: MACITENTAN
     Indication: PULMONARY ARTERIAL HYPERTENSION
     Dosage: 10 MG, QD
     Route: 048
  2. SILDENAFIL CITRATE. [Concomitant]
     Active Substance: SILDENAFIL CITRATE

REACTIONS (9)
  - Product dose omission [Unknown]
  - Swelling [Unknown]
  - Renal failure [Unknown]
  - Dizziness [Unknown]
  - Fluid retention [Unknown]
  - Dyspnoea [Unknown]
  - Peripheral swelling [Unknown]
  - Fatigue [Unknown]
  - Hepatic failure [Unknown]
